FAERS Safety Report 6953387-X (Version None)
Quarter: 2010Q3

REPORT INFORMATION
  Report Type: 
  Country: None (occurrence: None)
  Receive Date: 20100829
  Receipt Date: 20100609
  Transmission Date: 20110219
  Serious: No
  Sender: FDA-Public Use
  Company Number: US-ABBOTT-10P-163-0650610-00

PATIENT
  Sex: Male
  Weight: 98.518 kg

DRUGS (9)
  1. NIASPAN [Suspect]
     Indication: HIGH DENSITY LIPOPROTEIN DECREASED
     Dosage: QHS
  2. NIASPAN [Suspect]
  3. ASPIRIN [Concomitant]
     Indication: PRODUCT USED FOR UNKNOWN INDICATION
  4. BENICAR [Concomitant]
     Indication: BLOOD PRESSURE
  5. CRESTOR [Concomitant]
     Indication: PRODUCT USED FOR UNKNOWN INDICATION
  6. PLAVIX [Concomitant]
     Indication: PRODUCT USED FOR UNKNOWN INDICATION
  7. ATENOLOL [Concomitant]
     Indication: PRODUCT USED FOR UNKNOWN INDICATION
  8. FINASTERIDE [Concomitant]
     Indication: PRODUCT USED FOR UNKNOWN INDICATION
  9. HUMULIN 70/30 [Concomitant]
     Indication: DIABETES MELLITUS
     Dosage: 5 U BEFORE BREAKFAST/10 U BEFORE DINNER

REACTIONS (7)
  - DIABETES MELLITUS [None]
  - DIZZINESS [None]
  - ERYTHEMA [None]
  - FEELING HOT [None]
  - FLUSHING [None]
  - HYPOTENSION [None]
  - PRURITUS [None]
